FAERS Safety Report 4435956-4 (Version None)
Quarter: 2004Q3

REPORT INFORMATION
  Report Type: 
  Country: None (occurrence: None)
  Receive Date: 20040826
  Receipt Date: 20040813
  Transmission Date: 20050211
  Serious: Yes (Life-Threatening)
  Sender: FDA-Public Use
  Company Number: 04P-163-0254902-00

PATIENT
  Age: 61 Year
  Sex: Male

DRUGS (6)
  1. TRICOR [Suspect]
     Indication: DYSLIPIDAEMIA
     Dosage: 160 MG, 1 IN 1 D, PER ORAL
     Route: 048
     Dates: start: 20040211, end: 20040315
  2. PLACEBO [Suspect]
     Indication: DYSLIPIDAEMIA
     Dosage: 1 TABLET, 1 IN 1 D, ORAL
     Route: 048
     Dates: start: 20040211, end: 20040315
  3. CETIRIZINE HCL [Concomitant]
  4. LANSOPRAZOLE [Concomitant]
  5. IBUPROFEN [Concomitant]
  6. SALBUTAMOL SULFATE [Concomitant]

REACTIONS (3)
  - SINUS ARREST [None]
  - SINUS BRADYCARDIA [None]
  - SLEEP APNOEA SYNDROME [None]
